FAERS Safety Report 8491830-8 (Version None)
Quarter: 2012Q3

REPORT INFORMATION
  Report Type: 
  Country: None (occurrence: None)
  Receive Date: 20120706
  Receipt Date: 20110603
  Transmission Date: 20120928
  Serious: No
  Sender: FDA-Public Use
  Company Number: US-GLAXOSMITHKLINE-A0930161A

PATIENT
  Age: 77 Year
  Sex: Female

DRUGS (10)
  1. ALBUTEROL [Concomitant]
  2. FLOVENT [Suspect]
     Indication: ASTHMA
     Dosage: 2PUFF PER DAY
     Route: 055
  3. FLUOXETINE [Concomitant]
  4. ASCORBIC ACID [Concomitant]
  5. METAMUCIL-2 [Concomitant]
  6. ASPIRIN [Concomitant]
  7. VITAMIN D [Concomitant]
  8. ALLEGRA [Concomitant]
  9. FLONASE [Concomitant]
  10. BLOOD PRESSURE MEDICATION [Concomitant]

REACTIONS (3)
  - PRURITUS [None]
  - PRODUCT QUALITY ISSUE [None]
  - FEELING ABNORMAL [None]
